FAERS Safety Report 9538262 (Version 2)
Quarter: 2013Q4

REPORT INFORMATION
  Report Type: Report from Study
  Country: BR (occurrence: BR)
  Receive Date: 20130920
  Receipt Date: 20131015
  Transmission Date: 20140711
  Serious: Yes (Other)
  Sender: FDA-Public Use
  Company Number: BR-ROCHE-1276942

PATIENT
  Sex: Female

DRUGS (7)
  1. XOLAIR [Suspect]
     Indication: ASTHMA
     Dosage: 2 AMPOULES
     Route: 065
     Dates: start: 20130717
  2. XOLAIR [Suspect]
     Route: 058
  3. XOLAIR [Suspect]
     Route: 058
  4. XOLAIR [Suspect]
     Route: 058
  5. SERETIDE [Concomitant]
     Route: 065
     Dates: start: 2009
  6. BUDECORT [Concomitant]
     Route: 065
     Dates: start: 2009
  7. SINGULAIR [Concomitant]
     Route: 065
     Dates: start: 2012

REACTIONS (4)
  - Influenza [Recovered/Resolved]
  - Feeling hot [Not Recovered/Not Resolved]
  - Malaise [Not Recovered/Not Resolved]
  - Dysphagia [Not Recovered/Not Resolved]
